FAERS Safety Report 20636667 (Version 1)
Quarter: 2022Q1

REPORT INFORMATION
  Report Type: Spontaneous
  Country: TR (occurrence: TR)
  Receive Date: 20220325
  Receipt Date: 20220325
  Transmission Date: 20220424
  Serious: Yes (Other)
  Sender: FDA-Public Use
  Company Number: TR-JNJFOC-20220340443

PATIENT
  Age: 62 Year
  Sex: Male

DRUGS (5)
  1. DARZALEX [Suspect]
     Active Substance: DARATUMUMAB
     Indication: Product used for unknown indication
     Route: 065
     Dates: start: 20220218
  2. LENALIDOMIDE [Suspect]
     Active Substance: LENALIDOMIDE
     Indication: Product used for unknown indication
     Route: 065
  3. DEXAMETHASONE [Suspect]
     Active Substance: DEXAMETHASONE
     Indication: Product used for unknown indication
     Route: 065
  4. ACYCLOVIR [Concomitant]
     Active Substance: ACYCLOVIR
     Indication: Product used for unknown indication
     Route: 065
  5. CALCIMAX [CALCIUM CITRATE] [Concomitant]
     Indication: Product used for unknown indication
     Route: 065

REACTIONS (3)
  - Febrile neutropenia [Unknown]
  - Diplopia [Unknown]
  - Eyelid ptosis [Unknown]

NARRATIVE: CASE EVENT DATE: 20220313
